FAERS Safety Report 7703845-5 (Version None)
Quarter: 2011Q3

REPORT INFORMATION
  Report Type: 
  Country: None (occurrence: None)
  Receive Date: 20110823
  Receipt Date: 20110812
  Transmission Date: 20111222
  Serious: Yes (Other)
  Sender: FDA-Public Use
  Company Number: US-BAYER-2011-005057

PATIENT
  Age: 29 Year
  Sex: Female
  Weight: 86.621 kg

DRUGS (4)
  1. YASMIN [Suspect]
     Indication: HORMONE LEVEL ABNORMAL
  2. YAZ [Suspect]
     Indication: CONTRACEPTION
     Dosage: UNK
     Dates: start: 20091201, end: 20100601
  3. YAZ [Suspect]
     Indication: HORMONE LEVEL ABNORMAL
  4. YASMIN [Suspect]
     Indication: CONTRACEPTION
     Dosage: UNK
     Dates: start: 20091201, end: 20100601

REACTIONS (6)
  - GALLBLADDER DISORDER [None]
  - BILIARY DYSKINESIA [None]
  - PAIN [None]
  - INJURY [None]
  - EMOTIONAL DISTRESS [None]
  - CHOLECYSTITIS [None]
